FAERS Safety Report 8418883-7 (Version None)
Quarter: 2012Q2

REPORT INFORMATION
  Report Type: 
  Country: None (occurrence: None)
  Receive Date: 20120530
  Receipt Date: 20120518
  Transmission Date: 20120825
  Serious: Yes (Hospitalization)
  Sender: FDA-Public Use
  Company Number: 2012SP027500

PATIENT
  Sex: Male

DRUGS (1)
  1. SYCREST (ASENAPINE) [Suspect]
     Indication: BIPOLAR DISORDER
     Dosage: ;SL
     Route: 060
     Dates: start: 20120501, end: 20120501

REACTIONS (1)
  - HYPOTENSION [None]
